FAERS Safety Report 20496917 (Version 12)
Quarter: 2024Q2

REPORT INFORMATION
  Report Type: Report from Study
  Country: US (occurrence: US)
  Receive Date: 20220221
  Receipt Date: 20240620
  Transmission Date: 20240716
  Serious: Yes (Hospitalization, Other)
  Sender: FDA-Public Use
  Company Number: US-TAKEDA-2022TUS009692

PATIENT
  Age: 37 Year
  Sex: Female

DRUGS (75)
  1. TEDUGLUTIDE [Suspect]
     Active Substance: TEDUGLUTIDE
     Indication: Short-bowel syndrome
     Dosage: 1 MILLIGRAM, QD
     Route: 042
     Dates: start: 20210128, end: 20210503
  2. TEDUGLUTIDE [Suspect]
     Active Substance: TEDUGLUTIDE
     Indication: Short-bowel syndrome
     Dosage: 1 MILLIGRAM, QD
     Route: 042
     Dates: start: 20210128, end: 20210503
  3. TEDUGLUTIDE [Suspect]
     Active Substance: TEDUGLUTIDE
     Indication: Short-bowel syndrome
     Dosage: 1 MILLIGRAM, QD
     Route: 042
     Dates: start: 20210128, end: 20210503
  4. TEDUGLUTIDE [Suspect]
     Active Substance: TEDUGLUTIDE
     Indication: Short-bowel syndrome
     Dosage: 1 MILLIGRAM, QD
     Route: 042
     Dates: start: 20210128, end: 20210503
  5. TEDUGLUTIDE [Suspect]
     Active Substance: TEDUGLUTIDE
     Dosage: 3 MILLIGRAM, QD
     Route: 042
     Dates: start: 20210505
  6. TEDUGLUTIDE [Suspect]
     Active Substance: TEDUGLUTIDE
     Dosage: 3 MILLIGRAM, QD
     Route: 042
     Dates: start: 20210505
  7. TEDUGLUTIDE [Suspect]
     Active Substance: TEDUGLUTIDE
     Dosage: 3 MILLIGRAM, QD
     Route: 042
     Dates: start: 20210505
  8. TEDUGLUTIDE [Suspect]
     Active Substance: TEDUGLUTIDE
     Dosage: 3 MILLIGRAM, QD
     Route: 042
     Dates: start: 20210505
  9. PERCOCET [Concomitant]
     Active Substance: ACETAMINOPHEN\OXYCODONE HYDROCHLORIDE
     Indication: Pain
     Dosage: 5 MILLIGRAM, Q4HR
     Route: 048
     Dates: start: 20210718, end: 20210729
  10. PERCOCET [Concomitant]
     Active Substance: ACETAMINOPHEN\OXYCODONE HYDROCHLORIDE
     Dosage: 10 MILLIGRAM, Q4HR
     Route: 048
     Dates: start: 20210718, end: 20210729
  11. AMBIEN [Concomitant]
     Active Substance: ZOLPIDEM TARTRATE
     Indication: Insomnia
     Dosage: 5 MILLIGRAM, QD
     Route: 048
     Dates: start: 20210718, end: 20210729
  12. TECHNETIUM TC-99M ARCITUMOMAB [Concomitant]
     Active Substance: TECHNETIUM TC-99M ARCITUMOMAB
     Indication: Imaging procedure
     Dosage: UNK
     Route: 058
     Dates: start: 20210717, end: 20210717
  13. CHOLECALCIFEROL [Concomitant]
     Active Substance: CHOLECALCIFEROL
     Indication: Hypovitaminosis
     Dosage: UNK, QD
     Route: 048
     Dates: start: 20170803
  14. PROTINEX [Concomitant]
     Indication: Malnutrition
     Dosage: 30 MILLILITER, TID
     Route: 048
     Dates: start: 20180919
  15. KLONOPIN [Concomitant]
     Active Substance: CLONAZEPAM
     Indication: Anxiety
     Dosage: 0.5 MILLIGRAM
     Route: 048
     Dates: start: 20161026, end: 20200804
  16. CYANOCOBALAMIN [Concomitant]
     Active Substance: CYANOCOBALAMIN
     Indication: Hypovitaminosis
     Dosage: 1000 MICROGRAM, QD
     Route: 030
     Dates: start: 20160726
  17. CYANOCOBALAMIN [Concomitant]
     Active Substance: CYANOCOBALAMIN
     Indication: Malabsorption
     Dosage: 1000 MICROGRAM
     Route: 030
     Dates: start: 20230913
  18. LEXAPRO [Concomitant]
     Active Substance: ESCITALOPRAM OXALATE
     Indication: Mixed anxiety and depressive disorder
     Dosage: 10 MILLIGRAM, QD
     Route: 048
     Dates: start: 20160726, end: 20200122
  19. DURAGESIC [Concomitant]
     Active Substance: FENTANYL
     Indication: Pain
     Dosage: 75 MICROGRAM
     Route: 062
     Dates: start: 20170803, end: 20200720
  20. DURAGESIC [Concomitant]
     Active Substance: FENTANYL
     Dosage: 50 MICROGRAM
     Route: 058
     Dates: start: 20200807, end: 20200807
  21. DURAGESIC [Concomitant]
     Active Substance: FENTANYL
     Dosage: 50 MICROGRAM
     Route: 058
     Dates: start: 20200810, end: 20200810
  22. GLUTASOLVE [Concomitant]
     Indication: Malnutrition
     Dosage: 15 GRAM
     Route: 050
     Dates: start: 20180919
  23. GUAR GUM [Concomitant]
     Active Substance: GUAR GUM
     Indication: Malabsorption
     Dosage: UNK, QID
     Route: 048
     Dates: start: 20180919
  24. ONDANSETRON [Concomitant]
     Active Substance: ONDANSETRON
     Indication: Nausea
     Dosage: 4 MILLIGRAM
     Route: 048
     Dates: start: 20200804, end: 20200825
  25. ONDANSETRON [Concomitant]
     Active Substance: ONDANSETRON
     Dosage: 4 MILLIGRAM
     Route: 042
     Dates: start: 20210718, end: 20210729
  26. VANCOMYCIN [Concomitant]
     Active Substance: VANCOMYCIN
     Indication: Sepsis
     Dosage: 750 MILLIGRAM, QD
     Route: 042
     Dates: start: 20200804, end: 20200811
  27. VANCOMYCIN [Concomitant]
     Active Substance: VANCOMYCIN
     Dosage: UNK UNK, BID
     Route: 058
     Dates: start: 20200825, end: 20200826
  28. VANCOMYCIN [Concomitant]
     Active Substance: VANCOMYCIN
     Dosage: 1250 UNK
     Route: 042
     Dates: start: 20200826, end: 20200831
  29. ROCEPHIN [Concomitant]
     Active Substance: CEFTRIAXONE SODIUM
     Indication: Sepsis
     Dosage: 2 GRAM, QD
     Route: 042
     Dates: start: 20200804, end: 20200826
  30. TRILEPTAL [Concomitant]
     Active Substance: OXCARBAZEPINE
     Indication: Seizure
     Dosage: 150 MILLIGRAM, BID
     Route: 048
     Dates: start: 20200805, end: 20200828
  31. PROVENTIL [Concomitant]
     Active Substance: ALBUTEROL
     Indication: Asthma
     Dosage: 2.5 MILLIGRAM, QD
     Route: 055
     Dates: start: 20200804, end: 20200825
  32. LIDOCAINE [Concomitant]
     Active Substance: LIDOCAINE
     Indication: Pain
     Dosage: UNK
     Route: 061
     Dates: start: 20200805, end: 20200805
  33. LIDOCAINE [Concomitant]
     Active Substance: LIDOCAINE
     Dosage: UNK
     Route: 058
     Dates: start: 20200810, end: 20200810
  34. HEPARIN [Concomitant]
     Active Substance: HEPARIN SODIUM
     Indication: Preoperative care
     Dosage: UNK
     Route: 058
     Dates: start: 20200805, end: 20200805
  35. VITAMIN A [Concomitant]
     Active Substance: VITAMIN A
     Indication: Mineral deficiency
     Dosage: UNK UNK, QD
     Route: 048
     Dates: start: 20200807, end: 20200812
  36. VITAMIN A [Concomitant]
     Active Substance: VITAMIN A
     Dosage: 3 MILLIGRAM
     Route: 048
     Dates: start: 20200813
  37. LYRICA [Concomitant]
     Active Substance: PREGABALIN
     Indication: Anxiety
     Dosage: 50 MILLIGRAM, BID
     Route: 048
     Dates: start: 20200807, end: 20200825
  38. EFFEXOR [Concomitant]
     Active Substance: VENLAFAXINE HYDROCHLORIDE
     Indication: Depression
     Dosage: 37.5 MILLIGRAM, QD
     Route: 048
     Dates: start: 20200124, end: 20200807
  39. EFFEXOR [Concomitant]
     Active Substance: VENLAFAXINE HYDROCHLORIDE
     Dosage: 25 MILLIGRAM, QD
     Route: 048
     Dates: start: 20200807, end: 20200901
  40. MELATONIN [Concomitant]
     Active Substance: MELATONIN
     Indication: Insomnia
     Dosage: 3 MILLIGRAM
     Route: 048
     Dates: start: 20200807, end: 20200901
  41. LOPERAMIDE [Concomitant]
     Active Substance: LOPERAMIDE
     Indication: Diarrhoea
     Dosage: 4 MILLIGRAM, QID
     Route: 048
     Dates: start: 20200809, end: 20200812
  42. LOPERAMIDE [Concomitant]
     Active Substance: LOPERAMIDE
     Dosage: 2 MILLIGRAM, QD
     Route: 048
     Dates: start: 20201104, end: 20210717
  43. FLUCONAZOLE [Concomitant]
     Active Substance: FLUCONAZOLE
     Indication: Sepsis
     Dosage: 200 MILLIGRAM, QD
     Route: 042
     Dates: start: 20200804, end: 20200806
  44. FLUCONAZOLE [Concomitant]
     Active Substance: FLUCONAZOLE
     Indication: Systemic candida
     Dosage: 800 MILLIGRAM, QD
     Route: 042
     Dates: start: 20200827, end: 20200827
  45. FLUCONAZOLE [Concomitant]
     Active Substance: FLUCONAZOLE
     Dosage: 400 MILLIGRAM, QD
     Route: 042
     Dates: start: 20200828, end: 20200831
  46. LEVAQUIN [Concomitant]
     Active Substance: LEVOFLOXACIN
     Indication: Urinary tract infection
     Dosage: 500 MILLIGRAM, QD
     Route: 042
     Dates: start: 20200825
  47. POTASSIUM CHLORIDE [Concomitant]
     Active Substance: POTASSIUM CHLORIDE
     Indication: Hypokalaemia
     Dosage: UNK
     Route: 042
     Dates: start: 20200825
  48. MICAFUNGIN [Concomitant]
     Active Substance: MICAFUNGIN SODIUM
     Indication: Urinary tract infection
     Dosage: 1000 MILLIGRAM, QD
     Route: 042
     Dates: start: 20200831, end: 20200911
  49. MICAFUNGIN [Concomitant]
     Active Substance: MICAFUNGIN SODIUM
     Indication: Fungaemia
  50. SEROQUEL [Concomitant]
     Active Substance: QUETIAPINE FUMARATE
     Indication: Insomnia
     Dosage: 25 MILLIGRAM, BID
     Route: 048
     Dates: start: 20200901, end: 20210928
  51. HALOPERIDOL [Concomitant]
     Active Substance: HALOPERIDOL
     Indication: Psychotic disorder
     Dosage: 5 MILLIGRAM
     Route: 058
     Dates: start: 20200901
  52. ZITHROMAX [Concomitant]
     Active Substance: AZITHROMYCIN DIHYDRATE
     Indication: Pneumonia bacterial
     Dosage: 500 MILLIGRAM, QD
     Route: 042
     Dates: start: 20200827, end: 20200829
  53. RISPERIDONE [Concomitant]
     Active Substance: RISPERIDONE
     Indication: Psychotic disorder
     Dosage: 1 MILLIGRAM, BID
     Route: 048
     Dates: start: 20200901
  54. IPRATROPIUM [Concomitant]
     Active Substance: IPRATROPIUM
     Indication: Pneumonia
     Dosage: 0.05 MILLIGRAM
     Route: 055
     Dates: start: 20200826, end: 20200827
  55. LORAZEPAM [Concomitant]
     Active Substance: LORAZEPAM
     Indication: Anxiety
     Dosage: 0.5 MILLIGRAM
     Route: 058
     Dates: start: 20200826, end: 20200826
  56. CLONAZEPAM [Concomitant]
     Active Substance: CLONAZEPAM
     Indication: Anxiety
     Dosage: 0.5 MILLIGRAM, BID
     Route: 048
     Dates: start: 20200826, end: 20200827
  57. MEROPENEM [Concomitant]
     Active Substance: MEROPENEM
     Indication: Sepsis
     Dosage: 1 GRAM, QD
     Route: 042
     Dates: start: 20200826, end: 20200829
  58. METOPROLOL TARTRATE [Concomitant]
     Active Substance: METOPROLOL TARTRATE
     Indication: Tachycardia
     Dosage: 5 MILLIGRAM
     Route: 058
     Dates: start: 20200827, end: 20200827
  59. METHYLPREDNISOLONE ACETATE [Concomitant]
     Active Substance: METHYLPREDNISOLONE ACETATE
     Indication: Pneumonia
     Dosage: 40 MILLIGRAM
     Route: 058
     Dates: start: 20200827, end: 20200827
  60. ACETAMINOPHEN [Concomitant]
     Active Substance: ACETAMINOPHEN
     Indication: Pain
     Dosage: 325 MILLIGRAM
     Route: 048
     Dates: start: 20210930
  61. OXYCODONE [Concomitant]
     Active Substance: OXYCODONE\OXYCODONE HYDROCHLORIDE
     Indication: Pain
     Dosage: 10 MILLIGRAM
     Route: 048
     Dates: start: 20210930, end: 20211016
  62. GLUTAMINE [Concomitant]
     Active Substance: GLUTAMINE
     Indication: Hypovitaminosis
     Dosage: 15 GRAM, BID
     Route: 048
     Dates: start: 20210503
  63. GLUTAMINE [Concomitant]
     Active Substance: GLUTAMINE
     Indication: Mineral deficiency
  64. ELIQUIS [Concomitant]
     Active Substance: APIXABAN
     Indication: Deep vein thrombosis
     Dosage: 5 MILLIGRAM, BID
     Route: 048
     Dates: start: 20200405, end: 20210717
  65. FLAGYL [Concomitant]
     Active Substance: METRONIDAZOLE\METRONIDAZOLE HYDROCHLORIDE
     Indication: Sepsis
     Dosage: 500 MILLIGRAM
     Route: 048
     Dates: start: 20211203, end: 20211203
  66. HYDROMORPHONE [Concomitant]
     Active Substance: HYDROMORPHONE
     Indication: Pain
     Dosage: 1 MILLIGRAM
     Route: 048
     Dates: start: 20211203, end: 20211203
  67. VIMPAT [Concomitant]
     Active Substance: LACOSAMIDE
     Indication: Anticonvulsant drug level
     Dosage: 200 MILLIGRAM, QD
     Route: 048
     Dates: start: 20210718, end: 20211130
  68. VIMPAT [Concomitant]
     Active Substance: LACOSAMIDE
     Indication: Seizure
     Dosage: 100 MILLIGRAM, QD
     Route: 048
     Dates: start: 20211203
  69. ISOVUE [Concomitant]
     Active Substance: IOPAMIDOL
     Indication: Imaging procedure
     Dosage: UNK
     Route: 042
     Dates: start: 20211203, end: 20211203
  70. MYCAMINE [Concomitant]
     Active Substance: MICAFUNGIN SODIUM
     Indication: Candida infection
     Dosage: 150 MILLIGRAM, QD
     Route: 042
     Dates: start: 20210718, end: 20210729
  71. PANTOPRAZOLE [Concomitant]
     Active Substance: PANTOPRAZOLE
     Indication: Nausea
     Dosage: 40 MILLIGRAM, QD
     Route: 042
     Dates: start: 20210718, end: 20210729
  72. BENADRYL [Concomitant]
     Active Substance: DIPHENHYDRAMINE HYDROCHLORIDE
     Indication: Multiple allergies
     Dosage: 25 MILLIGRAM
     Route: 042
     Dates: start: 20210718, end: 20210729
  73. DILAUDID [Concomitant]
     Active Substance: HYDROMORPHONE HYDROCHLORIDE
     Indication: Pain
     Dosage: 1 MILLIGRAM
     Route: 042
     Dates: start: 20210724, end: 20210729
  74. ATIVAN [Concomitant]
     Active Substance: LORAZEPAM
     Indication: Anxiety
     Dosage: 1 MILLIGRAM
     Route: 042
     Dates: start: 20210718, end: 20210729
  75. PANCRELIPASE [Concomitant]
     Active Substance: PANCRELIPASE
     Indication: Malabsorption
     Dosage: 2 DOSAGE FORM, TID
     Route: 048
     Dates: start: 20230913

REACTIONS (8)
  - Bile duct stone [Recovered/Resolved]
  - Cholelithiasis [Recovered/Resolved]
  - Enterobacter infection [Recovered/Resolved]
  - Pneumonia klebsiella [Recovered/Resolved]
  - Hepatic enzyme increased [Recovered/Resolved]
  - Hypernatraemia [Recovered/Resolved]
  - Iron deficiency [Recovered/Resolved]
  - Hypochloraemia [Recovered/Resolved]

NARRATIVE: CASE EVENT DATE: 20220118
